FAERS Safety Report 12888733 (Version 5)
Quarter: 2017Q4

REPORT INFORMATION
  Report Type: Report from Study
  Country: JP (occurrence: JP)
  Receive Date: 20161027
  Receipt Date: 20171205
  Transmission Date: 20180320
  Serious: Yes (Life-Threatening, Hospitalization, Other)
  Sender: FDA-Public Use
  Company Number: PHJP2016JP027436

PATIENT
  Age: 54 Year
  Sex: Male

DRUGS (5)
  1. XARELTO [Concomitant]
     Active Substance: RIVAROXABAN
     Indication: PRODUCT USED FOR UNKNOWN INDICATION
     Dosage: 15 MG, UNK
     Route: 048
  2. ZYKADIA [Suspect]
     Active Substance: CERITINIB
     Dosage: 600 MG, QD
     Route: 048
     Dates: start: 20161109, end: 20161129
  3. ZYKADIA [Suspect]
     Active Substance: CERITINIB
     Indication: NON-SMALL CELL LUNG CANCER STAGE IV
     Dosage: 750 MG, QD
     Route: 048
     Dates: start: 20160915, end: 20161017
  4. NEXIUM [Concomitant]
     Active Substance: ESOMEPRAZOLE MAGNESIUM
     Indication: PRODUCT USED FOR UNKNOWN INDICATION
     Dosage: 20 MG, UNK
     Route: 048
  5. ZYKADIA [Suspect]
     Active Substance: CERITINIB
     Dosage: 450 MG, QD
     Route: 048
     Dates: start: 20161219, end: 20161229

REACTIONS (9)
  - Intra-abdominal haemorrhage [Recovered/Resolved]
  - Neoplasm progression [Unknown]
  - Amylase increased [Recovered/Resolved]
  - Cholecystitis [Recovered/Resolved]
  - Liver disorder [Recovered/Resolved]
  - Nausea [Recovered/Resolved]
  - Concomitant disease aggravated [Recovered/Resolved]
  - Lipase increased [Recovered/Resolved]
  - Metastases to liver [Not Recovered/Not Resolved]

NARRATIVE: CASE EVENT DATE: 20160919
